FAERS Safety Report 8134481-7 (Version None)
Quarter: 2012Q1

REPORT INFORMATION
  Report Type: 
  Country: None (occurrence: None)
  Receive Date: 20120210
  Receipt Date: 20120208
  Transmission Date: 20120608
  Serious: Yes (Hospitalization, Other)
  Sender: FDA-Public Use
  Company Number: ADR-2012-00229

PATIENT
  Sex: Male

DRUGS (2)
  1. BACLOFEN [Suspect]
     Indication: MUSCLE SPASTICITY
  2. BACLOFEN [Suspect]
     Indication: SPINAL CORD INJURY

REACTIONS (7)
  - MUSCLE SPASTICITY [None]
  - DRUG WITHDRAWAL SYNDROME [None]
  - CONDITION AGGRAVATED [None]
  - IMPLANT SITE EFFUSION [None]
  - MENTAL STATUS CHANGES [None]
  - URINARY TRACT INFECTION [None]
  - DEVICE LEAKAGE [None]
